FAERS Safety Report 24257678 (Version 1)
Quarter: 2024Q3

REPORT INFORMATION
  Report Type: Spontaneous
  Country: US (occurrence: US)
  Receive Date: 20240828
  Receipt Date: 20240828
  Transmission Date: 20241017
  Serious: No
  Sender: AMGEN
  Company Number: US-AMGEN-USASP2024168479

PATIENT

DRUGS (2)
  1. SODIUM PHENYLBUTYRATE [Suspect]
     Active Substance: SODIUM PHENYLBUTYRATE
     Indication: Dementia Alzheimer^s type
     Dosage: 3 GRAM PER SACHET  (ONCE DAILY FOR THE FIRST WEEK, THEN TWICE DAILY)
     Route: 048
  2. TAURURSODIOL [Concomitant]
     Active Substance: TAURURSODIOL
     Indication: Dementia Alzheimer^s type
     Dosage: 1 GRAM PER SACHET (ONCE DAILY FOR THE FIRST WEEK, THEN TWICE DAILY)
     Route: 048

REACTIONS (2)
  - Adverse event [Unknown]
  - Off label use [Unknown]
